FAERS Safety Report 5387528-5 (Version None)
Quarter: 2007Q3

REPORT INFORMATION
  Report Type: 
  Country: None (occurrence: None)
  Receive Date: 20070711
  Receipt Date: 20070711
  Transmission Date: 20080115
  Serious: Yes (Other)
  Sender: FDA-Public Use
  Company Number: None

PATIENT
  Age: 59 Year
  Sex: Male
  Weight: 86.2 kg

DRUGS (1)
  1. BACTRIM [Suspect]
     Indication: HIV INFECTION
     Dosage: DS (BACT, DS QD, ORAL
     Route: 048
     Dates: start: 20070423, end: 20070509

REACTIONS (1)
  - RASH [None]
